FAERS Safety Report 7620984-8 (Version None)
Quarter: 2011Q3

REPORT INFORMATION
  Report Type: 
  Country: None (occurrence: None)
  Receive Date: 20110719
  Receipt Date: 20101108
  Transmission Date: 20111222
  Serious: No
  Sender: FDA-Public Use
  Company Number: US-KINGPHARMUSA00001-K201001377

PATIENT
  Age: 64 Year
  Sex: Female
  Weight: 61.224 kg

DRUGS (1)
  1. LEVOXYL [Suspect]
     Indication: HYPOTHYROIDISM
     Dosage: 88 MCG, QD
     Route: 048
     Dates: start: 20100801

REACTIONS (2)
  - HAIR TEXTURE ABNORMAL [None]
  - ALOPECIA [None]
